FAERS Safety Report 9605787 (Version 2)
Quarter: 2013Q4

REPORT INFORMATION
  Report Type: Spontaneous
  Country: US (occurrence: US)
  Receive Date: 20131008
  Receipt Date: 20131008
  Transmission Date: 20140711
  Serious: No
  Sender: FDA-Public Use
  Company Number: US-AMGEN-USASP2013057251

PATIENT
  Age: 72 Year
  Sex: Male
  Weight: 118.82 kg

DRUGS (2)
  1. XGEVA [Suspect]
     Indication: PROSTATE CANCER METASTATIC
     Dosage: 120 MG, QMO
     Route: 058
     Dates: start: 20110906, end: 20111005
  2. CHEMOTHERAPEUTICS [Concomitant]

REACTIONS (1)
  - Oedema peripheral [Recovered/Resolved]
